FAERS Safety Report 13582896 (Version 3)
Quarter: 2017Q3

REPORT INFORMATION
  Report Type: Spontaneous
  Country: US (occurrence: US)
  Receive Date: 20170525
  Receipt Date: 20170718
  Transmission Date: 20171127
  Serious: Yes (Other)
  Sender: FDA-Public Use
  Company Number: US-ENDO PHARMACEUTICALS INC-2017-002917

PATIENT
  Age: 48 Year
  Sex: Female
  Weight: 49.89 kg

DRUGS (6)
  1. ESTRACE [Concomitant]
     Active Substance: ESTRADIOL
     Indication: HORMONE REPLACEMENT THERAPY
     Dosage: 2 MG, DAILY
     Route: 065
     Dates: start: 2011
  2. OPANA ER [Suspect]
     Active Substance: OXYMORPHONE HYDROCHLORIDE
     Dosage: 20 MG, BID
     Route: 065
     Dates: start: 201701, end: 20170521
  3. OPANA ER [Suspect]
     Active Substance: OXYMORPHONE HYDROCHLORIDE
     Indication: PAIN IN EXTREMITY
     Dosage: 10 MG, BID
     Route: 065
     Dates: start: 2014, end: 201701
  4. OXYCODONE/ACETAMINOPHEN 10MG/325MG [Concomitant]
     Active Substance: ACETAMINOPHEN\OXYCODONE HYDROCHLORIDE
     Indication: BREAKTHROUGH PAIN
     Dosage: UNK, 1 TABLET EVERY 8 HOURS AS NEEDED
     Route: 065
     Dates: start: 2014
  5. OPANA ER [Suspect]
     Active Substance: OXYMORPHONE HYDROCHLORIDE
     Indication: BACK PAIN
     Dosage: 10 MG, BID
     Route: 048
     Dates: start: 20170522
  6. NUCYNTA [Concomitant]
     Active Substance: TAPENTADOL HYDROCHLORIDE
     Indication: PAIN IN EXTREMITY
     Dosage: 100 MG, UNKNOWN
     Route: 065
     Dates: start: 201705

REACTIONS (11)
  - Hypoaesthesia [Unknown]
  - Pain [Unknown]
  - Product taste abnormal [Unknown]
  - Drug effect decreased [Not Recovered/Not Resolved]
  - Pulmonary oedema [Unknown]
  - Drug ineffective [Unknown]
  - Lacrimation increased [Unknown]
  - Oesophageal dilation procedure [Unknown]
  - Rhinorrhoea [Unknown]
  - Foreign body in respiratory tract [Unknown]
  - Wrong technique in product usage process [Unknown]

NARRATIVE: CASE EVENT DATE: 2014
